FAERS Safety Report 8336163-5 (Version None)
Quarter: 2012Q1

REPORT INFORMATION
  Report Type: 
  Country: None (occurrence: None)
  Receive Date: 20120329
  Receipt Date: 20090610
  Transmission Date: 20120608
  Serious: Yes (Other)
  Sender: FDA-Public Use
  Company Number: PHEH2009US05978

PATIENT
  Age: 50 Year
  Sex: Male

DRUGS (1)
  1. EXELON [Suspect]
     Dosage: 4.6, QD TRANSDERMAL
     Route: 062

REACTIONS (3)
  - MUSCULOSKELETAL STIFFNESS [None]
  - TREMOR [None]
  - CONVULSION [None]
